FAERS Safety Report 4595627-0 (Version None)
Quarter: 2005Q1

REPORT INFORMATION
  Report Type: 
  Country: None (occurrence: None)
  Receive Date: 20050224
  Receipt Date: 20050218
  Transmission Date: 20050727
  Serious: Yes (Hospitalization)
  Sender: FDA-Public Use
  Company Number: 2005-125339-NL

PATIENT
  Age: 50 Year
  Sex: Male

DRUGS (4)
  1. MIRTAZAPINE [Suspect]
     Dosage: 45 MG
     Dates: start: 20030630, end: 20030718
  2. VENLAFAXINE HCL [Suspect]
     Dosage: 75 MG
     Dates: start: 20030718, end: 20040724
  3. PHENPROCOUMON [Concomitant]
  4. PANTOPRAZOLE SODIUM [Concomitant]

REACTIONS (4)
  - DERMATITIS ALLERGIC [None]
  - EXANTHEM [None]
  - PHOTOSENSITIVITY REACTION [None]
  - VASCULITIS [None]
